FAERS Safety Report 16723648 (Version 1)
Quarter: 2019Q3

REPORT INFORMATION
  Report Type: Spontaneous
  Country: FR (occurrence: FR)
  Receive Date: 20190821
  Receipt Date: 20190821
  Transmission Date: 20191005
  Serious: Yes (Life-Threatening)
  Sender: FDA-Public Use
  Company Number: FR-TEVA-2019-FR-1094184

PATIENT
  Age: 71 Year
  Sex: Male
  Weight: 48 kg

DRUGS (4)
  1. VITAMINE B12 [Concomitant]
     Active Substance: CYANOCOBALAMIN
     Route: 048
  2. TARDYFERON [Concomitant]
     Active Substance: FERROUS SULFATE
     Route: 048
  3. CARBOPLATIN. [Suspect]
     Active Substance: CARBOPLATIN
     Indication: OROPHARYNGEAL SQUAMOUS CELL CARCINOMA
     Dosage: INFUSION TIME - 30MIN
     Route: 041
     Dates: start: 20190510, end: 20190719
  4. PACLITAXEL. [Concomitant]
     Active Substance: PACLITAXEL
     Dosage: INFUSION TIME - 1 HOUR
     Route: 041
     Dates: start: 20190510, end: 20190719

REACTIONS (1)
  - Cardio-respiratory arrest [Recovering/Resolving]

NARRATIVE: CASE EVENT DATE: 20190719
